FAERS Safety Report 5991491-3 (Version None)
Quarter: 2008Q4

REPORT INFORMATION
  Report Type: 
  Country: None (occurrence: None)
  Receive Date: 20081211
  Receipt Date: 20081204
  Transmission Date: 20090506
  Serious: Yes (Hospitalization, Congenital Anomaly)
  Sender: FDA-Public Use
  Company Number: FR-AVENTIS-200814274FR

PATIENT
  Age: 1 Day
  Sex: Male
  Weight: 3.54 kg

DRUGS (5)
  1. AMARYL [Suspect]
     Route: 064
     Dates: start: 20070106, end: 20070110
  2. METFORMIN HCL [Suspect]
     Route: 064
     Dates: start: 20061123, end: 20070105
  3. METFORMIN HCL [Suspect]
     Route: 064
     Dates: start: 20070106, end: 20070110
  4. NORDETTE-21 [Concomitant]
     Indication: ORAL CONTRACEPTION
     Route: 064
     Dates: end: 20070110
  5. INSULIN [Concomitant]
     Route: 064
     Dates: start: 20070302

REACTIONS (2)
  - DRUG EXPOSURE DURING PREGNANCY [None]
  - POLYDACTYLY [None]
